FAERS Safety Report 7319526-6 (Version None)
Quarter: 2011Q1

REPORT INFORMATION
  Report Type: 
  Country: None (occurrence: None)
  Receive Date: 20110228
  Receipt Date: 20100427
  Transmission Date: 20110831
  Serious: No
  Sender: FDA-Public Use
  Company Number: A0857535A

PATIENT
  Sex: Female

DRUGS (2)
  1. LAMICTAL [Suspect]
     Dosage: 200MG UNKNOWN
     Route: 065
  2. OTHER MEDICATIONS [Concomitant]

REACTIONS (1)
  - ADVERSE DRUG REACTION [None]
